FAERS Safety Report 5673117-1 (Version None)
Quarter: 2008Q1

REPORT INFORMATION
  Report Type: 
  Country: None (occurrence: None)
  Receive Date: 20080319
  Receipt Date: 20080313
  Transmission Date: 20080703
  Serious: Yes (Hospitalization)
  Sender: FDA-Public Use
  Company Number: JP-ASTRAZENECA-2008AP01039

PATIENT
  Age: 66 Year
  Sex: Male
  Weight: 70 kg

DRUGS (1)
  1. CRESTOR [Suspect]
     Indication: LIPIDS ABNORMAL
     Route: 048
     Dates: start: 20050101, end: 20080205

REACTIONS (1)
  - NEUROPATHY PERIPHERAL [None]
